FAERS Safety Report 6817977-7 (Version None)
Quarter: 2010Q3

REPORT INFORMATION
  Report Type: 
  Country: None (occurrence: None)
  Receive Date: 20100706
  Receipt Date: 20100625
  Transmission Date: 20110219
  Serious: Yes (Other)
  Sender: FDA-Public Use
  Company Number: ES-AMGEN-QUU421340

PATIENT
  Sex: Female

DRUGS (1)
  1. NPLATE [Suspect]
     Indication: IDIOPATHIC THROMBOCYTOPENIC PURPURA

REACTIONS (7)
  - ABDOMINAL DISTENSION [None]
  - BACK PAIN [None]
  - BONE PAIN [None]
  - BURNING SENSATION [None]
  - PLATELET AGGREGATION [None]
  - RED BLOOD CELL ACANTHOCYTES PRESENT [None]
  - SWELLING [None]
